FAERS Safety Report 10208239 (Version 2)
Quarter: 2016Q2

REPORT INFORMATION
  Report Type: Spontaneous
  Country: US (occurrence: US)
  Receive Date: 20140530
  Receipt Date: 20160602
  Transmission Date: 20160815
  Serious: No
  Sender: FDA-Public Use
  Company Number: US-PURDUE-USA-2014-0111416

PATIENT
  Sex: Female

DRUGS (2)
  1. MORPHINE SULFATE (SIMILAR TO NDA 19-516) [Suspect]
     Active Substance: MORPHINE SULFATE
     Indication: PAIN
     Route: 048
  2. FENTANYL. [Suspect]
     Active Substance: FENTANYL
     Indication: PAIN
     Route: 065

REACTIONS (2)
  - Drug ineffective [Unknown]
  - Feeling abnormal [Unknown]
